FAERS Safety Report 8451075 (Version 3)
Quarter: 2013Q3

REPORT INFORMATION
  Report Type: Spontaneous
  Country: US (occurrence: US)
  Receive Date: 20120309
  Receipt Date: 20130924
  Transmission Date: 20140515
  Serious: Yes (Other)
  Sender: FDA-Public Use
  Company Number: US-JNJFOC-20120301106

PATIENT
  Sex: 0

DRUGS (1)
  1. NUCYNTA [Suspect]
     Indication: PAIN
     Route: 065

REACTIONS (2)
  - Anxiety [Unknown]
  - Aggression [Unknown]
